FAERS Safety Report 13015673 (Version 1)
Quarter: 2016Q4

REPORT INFORMATION
  Report Type: Spontaneous
  Country: AU (occurrence: AU)
  Receive Date: 20161212
  Receipt Date: 20161212
  Transmission Date: 20170207
  Serious: Yes (Other)
  Sender: FDA-Public Use
  Company Number: AU-009507513-1612AUS002083

PATIENT
  Age: 69 Year
  Sex: Male

DRUGS (17)
  1. BISOPROLOL [Concomitant]
     Active Substance: BISOPROLOL
     Dosage: 1.25 MG, DAILY (IN THE MORNING)
  2. FLUTICASONE PROPIONATE (+) SALMETEROL XINAFOATE [Concomitant]
     Active Substance: FLUTICASONE PROPIONATE\SALMETEROL XINAFOATE
     Dosage: 2 DOSE UNSPECIFIED DAILY
     Route: 055
  3. RISPERIDONE. [Concomitant]
     Active Substance: RISPERIDONE
     Dosage: 500 MICROGRAM, DAILY
  4. ALBUTEROL. [Suspect]
     Active Substance: ALBUTEROL
     Dosage: FORMULATION INHALATION, 100 MCG/DOSE 1-2 INHALED FOUR TIMES A DAY AS NEEDED
     Route: 055
  5. PREDNISOLONE. [Concomitant]
     Active Substance: PREDNISOLONE
     Dosage: 1 TABLET DAILY
  6. ALBUTEROL SULFATE. [Suspect]
     Active Substance: ALBUTEROL SULFATE
     Dosage: 5MG/2.5ML NEBULES,  1 NEBULISED FOUR TIMES A DAY WHEN NEEDED
     Route: 055
  7. IPRATROPIUM BROMIDE. [Concomitant]
     Active Substance: IPRATROPIUM BROMIDE
     Dosage: 500MCG/ML NEBULES AT ONE TWICE DAILY
  8. ACETAMINOPHEN. [Concomitant]
     Active Substance: ACETAMINOPHEN
     Dosage: 1 G, DAILY
  9. MIRTAZAPINE. [Suspect]
     Active Substance: MIRTAZAPINE
     Dosage: 15 MG, DAILY (AT NIGHT)
     Route: 048
  10. PANTOPRAZOLE [Concomitant]
     Active Substance: PANTOPRAZOLE SODIUM
     Dosage: 40 MILLIGRAM DAILY (IN THE MORNING)
  11. PREDNISOLONE. [Concomitant]
     Active Substance: PREDNISOLONE
     Dosage: 25MG TABLETS AT TAKE 2 TABLETS DAILY
     Route: 048
  12. PREDNISOLONE. [Concomitant]
     Active Substance: PREDNISOLONE
     Dosage: 1/2 TABLE TDAILY
  13. TIOTROPIUM BROMIDE [Concomitant]
     Active Substance: TIOTROPIUM BROMIDE
     Dosage: 18 MICROGRAM, DALIY (IN THE MORNING)
     Route: 055
  14. DIAZEPAM. [Suspect]
     Active Substance: DIAZEPAM
     Dosage: 5 MG, 3X/DAY AS NEEDED
     Route: 048
  15. ERGOCALCIFEROL. [Concomitant]
     Active Substance: ERGOCALCIFEROL
     Dosage: 25 MICROGRAM, DAILY (IN THE MORNING)
  16. HYDROXOCOBALAMIN [Concomitant]
     Active Substance: HYDROXOCOBALAMIN
     Dosage: 1 INJECTION EVERY 2 MONTHS
     Route: 030
  17. MAGNESIUM (UNSPECIFIED) [Concomitant]
     Active Substance: MAGNESIUM
     Dosage: 4 DOSE UNSPECIFIED DAILY(IN THRE MORNING)

REACTIONS (6)
  - Tremor [Unknown]
  - Drug dependence [Unknown]
  - Dyspnoea [Unknown]
  - Palpitations [Unknown]
  - Drug effect incomplete [Unknown]
  - Extra dose administered [Unknown]
